FAERS Safety Report 8187253-1 (Version None)
Quarter: 2012Q1

REPORT INFORMATION
  Report Type: 
  Country: None (occurrence: None)
  Receive Date: 20120302
  Receipt Date: 20120223
  Transmission Date: 20120608
  Serious: No
  Sender: FDA-Public Use
  Company Number: 2012SP005666

PATIENT
  Age: 44 Year
  Sex: Male

DRUGS (6)
  1. OLANZAPINE [Concomitant]
  2. VALPROATE SODIUM [Concomitant]
  3. CLOZAPINE [Concomitant]
  4. RISPERIDONE [Concomitant]
  5. SYCREST (ASENAPINE /05706901/) [Suspect]
     Indication: BIPOLAR DISORDER
     Dosage: 5 MG; BID; SL
     Route: 060
     Dates: start: 20120121, end: 20120127
  6. SYCREST (ASENAPINE /05706901/) [Suspect]
     Indication: SCHIZOAFFECTIVE DISORDER
     Dosage: 5 MG; BID; SL
     Route: 060
     Dates: start: 20120121, end: 20120127

REACTIONS (6)
  - MANIA [None]
  - THOUGHT BLOCKING [None]
  - FEELING ABNORMAL [None]
  - HYPOTENSION [None]
  - HYPOAESTHESIA ORAL [None]
  - NERVOUS SYSTEM DISORDER [None]
